FAERS Safety Report 9814210 (Version 1)
Quarter: 2014Q1

REPORT INFORMATION
  Report Type: Spontaneous
  Country: US (occurrence: US)
  Receive Date: 20140113
  Receipt Date: 20140113
  Transmission Date: 20141002
  Serious: No
  Sender: FDA-Public Use
  Company Number: US-009507513-1401USA004013

PATIENT
  Sex: Female

DRUGS (4)
  1. NUVARING [Suspect]
     Indication: CONTRACEPTION
     Dosage: UNK
     Dates: start: 201207
  2. ZYRTEC [Concomitant]
  3. CITALOPRAM [Concomitant]
  4. FLUTICASONE [Concomitant]

REACTIONS (2)
  - Vaginal discharge [Not Recovered/Not Resolved]
  - Product quality issue [Unknown]
